FAERS Safety Report 17927475 (Version 4)
Quarter: 2020Q3

REPORT INFORMATION
  Report Type: Spontaneous
  Country: FR (occurrence: FR)
  Receive Date: 20200622
  Receipt Date: 20200807
  Transmission Date: 20201103
  Serious: Yes (Hospitalization, Other)
  Sender: FDA-Public Use
  Company Number: NVSC2020FR172934

PATIENT
  Age: 71 Year
  Sex: Male
  Weight: 60 kg

DRUGS (7)
  1. SPIRAMYCIN [Suspect]
     Active Substance: SPIRAMYCIN
     Indication: PNEUMONIA
     Dosage: 6 DF, QD (6 MU, QD)
     Route: 050
     Dates: start: 20200328, end: 20200328
  2. VANCOMYCIN [Suspect]
     Active Substance: VANCOMYCIN
     Indication: STAPHYLOCOCCAL INFECTION
  3. CEFOTAXIME SODIUM [Suspect]
     Active Substance: CEFOTAXIME SODIUM
     Indication: PNEUMONIA KLEBSIELLA
     Dosage: 6 G, QD
     Route: 042
     Dates: start: 20200328, end: 20200330
  4. HYDROXYCHLOROQUINE SULPHATE [Suspect]
     Active Substance: HYDROXYCHLOROQUINE
     Indication: COVID-19
     Dosage: 600 MG, QD
     Route: 050
     Dates: start: 20200329, end: 20200330
  5. VANCOMYCIN [Suspect]
     Active Substance: VANCOMYCIN
     Indication: STAPHYLOCOCCAL BACTERAEMIA
     Dosage: 2 G, QD
     Route: 042
     Dates: start: 20200406, end: 20200410
  6. CEFOTAXIME SODIUM [Suspect]
     Active Substance: CEFOTAXIME SODIUM
     Indication: PNEUMONIA
     Dosage: 6 G, QD (LAST DOSE WAS RECEIVED ON 09 APR 2020)
     Route: 042
     Dates: start: 20200403
  7. HYDROXYCHLOROQUINE SULPHATE [Suspect]
     Active Substance: HYDROXYCHLOROQUINE
     Dosage: 400 MG, QD (LAST DOSE WAS RECEIVED ON 08 APR 2020)
     Route: 050
     Dates: start: 20200331

REACTIONS (6)
  - Pneumonia klebsiella [Not Recovered/Not Resolved]
  - Staphylococcal bacteraemia [Recovered/Resolved]
  - Pneumonia bacterial [Recovered/Resolved]
  - Acute kidney injury [Recovered/Resolved]
  - Staphylococcal infection [Recovered/Resolved]
  - Pneumonia bacterial [Recovered/Resolved]

NARRATIVE: CASE EVENT DATE: 20200331
